FAERS Safety Report 24965422 (Version 1)
Quarter: 2025Q1

REPORT INFORMATION
  Report Type: Spontaneous
  Country: US (occurrence: None)
  Receive Date: 20250212
  Receipt Date: 20250212
  Transmission Date: 20250409
  Serious: Yes (Hospitalization)
  Sender: FDA-CTU
  Company Number: None

PATIENT
  Age: 58 Year
  Sex: Female
  Weight: 84.15 kg

DRUGS (14)
  1. ZEPBOUND [Suspect]
     Active Substance: TIRZEPATIDE
     Indication: Obesity
     Route: 058
     Dates: start: 20241011, end: 20250109
  2. CLINDAMYCIN [Suspect]
     Active Substance: CLINDAMYCIN
  3. ondansetron 4 mg ODT [Concomitant]
  4. carbamazepine 200 mg tab [Concomitant]
  5. oxycodone 5 mg IR tab [Concomitant]
  6. pantoprazole 40 mg EC tab [Concomitant]
  7. levalbuterol 45 mcg/act inhaler [Concomitant]
  8. fluticasone 220 mcg/act inhaler [Concomitant]
  9. Dilt-XR 180 mg cap [Concomitant]
  10. ibuprofen 200 mg tab [Concomitant]
  11. CETIRIZINE HYDROCHLORIDE [Concomitant]
     Active Substance: CETIRIZINE HYDROCHLORIDE
  12. fluticasone 50 mcg/act nasal spray [Concomitant]
  13. dexamethasone 0.5 mg/5 mL soln [Concomitant]
  14. tramadol 50 mg tab [Concomitant]

REACTIONS (12)
  - Joint swelling [None]
  - Swollen tongue [None]
  - Oedema peripheral [None]
  - Oedema peripheral [None]
  - Facial pain [None]
  - Swelling [None]
  - Stomatitis [None]
  - Aphasia [None]
  - Drug hypersensitivity [None]
  - Tongue dry [None]
  - Oral disorder [None]
  - Muscle spasms [None]

NARRATIVE: CASE EVENT DATE: 20250118
